FAERS Safety Report 15557963 (Version 2)
Quarter: 2020Q2

REPORT INFORMATION
  Report Type: Spontaneous
  Country: US (occurrence: US)
  Receive Date: 20181027
  Receipt Date: 20200401
  Transmission Date: 20200713
  Serious: Yes (Death, Hospitalization, Other)
  Sender: FDA-Public Use
  Company Number: US-009507513-1810USA011251

PATIENT
  Sex: Male
  Weight: 90.7 kg

DRUGS (3)
  1. BYETTA [Suspect]
     Active Substance: EXENATIDE
     Dosage: CONCENTRATION: 10 MCG/ PEN/0.04 ML, 1 INJECTION TWICE A DAY
     Dates: start: 20100830, end: 201309
  2. VICTOZA [Suspect]
     Active Substance: LIRAGLUTIDE
     Dosage: WEEK ONE: INJECT 0.6 MG, WEEK 2 AND 3: INJECT 1.2 MG, ONCE DAILY
     Dates: start: 20100326, end: 201008
  3. JANUMET [Suspect]
     Active Substance: METFORMIN HYDROCHLORIDE\SITAGLIPTIN PHOSPHATE
     Dosage: 1 (50/1000 MG) TABLET, TWICE DAILY
     Route: 048
     Dates: start: 20070625, end: 200711

REACTIONS (34)
  - Biliary dilatation [Unknown]
  - Accessory spleen [Unknown]
  - Dyspnoea [Unknown]
  - Malignant ascites [Unknown]
  - Atrial fibrillation [Unknown]
  - Metastases to liver [Unknown]
  - Metastases to lung [Unknown]
  - Arteriosclerosis [Unknown]
  - Hernia [Unknown]
  - Coronary artery disease [Unknown]
  - Peripheral swelling [Unknown]
  - Diarrhoea [Recovered/Resolved]
  - Pancreatic duct dilatation [Unknown]
  - Renal failure [Unknown]
  - Arteriosclerosis coronary artery [Unknown]
  - Helicobacter test negative [Unknown]
  - Pancreatic carcinoma metastatic [Fatal]
  - Spleen scan abnormal [Unknown]
  - Cough [Unknown]
  - Pulmonary fibrosis [Unknown]
  - Gastrointestinal haemorrhage [Unknown]
  - Prostatic calcification [Unknown]
  - Steatorrhoea [Recovered/Resolved]
  - Metastases to lymph nodes [Unknown]
  - Cholecystitis acute [Unknown]
  - Stent placement [Unknown]
  - Hyperlipidaemia [Unknown]
  - Adrenal mass [Unknown]
  - Fluid retention [Unknown]
  - Chest pain [Unknown]
  - Duodenal ulcer [Unknown]
  - Renal cyst [Unknown]
  - Gastritis [Unknown]
  - Arteriosclerosis coronary artery [Unknown]

NARRATIVE: CASE EVENT DATE: 2008
